FAERS Safety Report 23358646 (Version 1)
Quarter: 2024Q1

REPORT INFORMATION
  Report Type: Spontaneous
  Country: US (occurrence: None)
  Receive Date: 20240101
  Receipt Date: 20240101
  Transmission Date: 20240409
  Serious: Yes (Hospitalization)
  Sender: FDA-Public Use
  Company Number: None

PATIENT

DRUGS (2)
  1. SOGROYA [Suspect]
     Active Substance: SOMAPACITAN-BECO
     Indication: Hypopituitarism
     Dosage: FREQUENCY : WEEKLY;?
     Route: 058
     Dates: start: 202308
  2. TACROLIMUS [Suspect]
     Active Substance: TACROLIMUS

REACTIONS (1)
  - Pyrexia [None]

NARRATIVE: CASE EVENT DATE: 20231201
